FAERS Safety Report 23074693 (Version 1)
Quarter: 2023Q4

REPORT INFORMATION
  Report Type: Spontaneous
  Country: US (occurrence: None)
  Receive Date: 20231017
  Receipt Date: 20231017
  Transmission Date: 20240110
  Serious: No
  Sender: FDA-Public Use
  Company Number: None

PATIENT
  Age: 15 Year
  Sex: Female
  Weight: 54 kg

DRUGS (2)
  1. ZENATANE [Suspect]
     Active Substance: ISOTRETINOIN
     Indication: Acne cystic
     Dosage: OTHER QUANTITY : 2 CAPSULE(S);?FREQUENCY : DAILY;?
     Route: 048
     Dates: start: 20230316, end: 20231009
  2. Iron pill [Concomitant]

REACTIONS (5)
  - Irritability [None]
  - Fatigue [None]
  - Asthenia [None]
  - Hallucination, visual [None]
  - Therapy cessation [None]

NARRATIVE: CASE EVENT DATE: 20231004
